FAERS Safety Report 25212668 (Version 1)
Quarter: 2025Q2

REPORT INFORMATION
  Report Type: Spontaneous
  Country: AR (occurrence: AR)
  Receive Date: 20250418
  Receipt Date: 20250418
  Transmission Date: 20250716
  Serious: Yes (Death)
  Sender: NOVITIUM PHARMA
  Company Number: AR-NOVITIUMPHARMA-2025ARNVP00925

PATIENT
  Age: 30 Year
  Sex: Male

DRUGS (7)
  1. PYRAZINAMIDE [Suspect]
     Active Substance: PYRAZINAMIDE
     Indication: Disseminated tuberculosis
  2. LINEZOLID [Concomitant]
     Active Substance: LINEZOLID
     Indication: Disseminated tuberculosis
  3. ETHAMBUTOL [Concomitant]
     Active Substance: ETHAMBUTOL HYDROCHLORIDE
     Indication: Disseminated tuberculosis
  4. RIFAMPIN [Concomitant]
     Active Substance: RIFAMPIN
     Indication: Disseminated tuberculosis
  5. ISONIAZID [Concomitant]
     Active Substance: ISONIAZID
     Indication: Disseminated tuberculosis
  6. AMIKACIN [Concomitant]
     Active Substance: AMIKACIN
     Indication: Disseminated tuberculosis
  7. MOXIFLOXACIN [Concomitant]
     Active Substance: MOXIFLOXACIN
     Indication: Disseminated tuberculosis

REACTIONS (1)
  - Treatment noncompliance [Fatal]
